FAERS Safety Report 9376027 (Version 1)
Quarter: 2013Q2

REPORT INFORMATION
  Report Type: Spontaneous
  Country: JP (occurrence: JP)
  Receive Date: 20130629
  Receipt Date: 20130629
  Transmission Date: 20140414
  Serious: Yes (Other)
  Sender: FDA-Public Use
  Company Number: JP-B.I. PHARMACEUTICALS,INC./RIDGEFIELD-2013-BI-18888YA

PATIENT
  Sex: Male

DRUGS (1)
  1. HARNAL (TAMSULOSIN) ORODISPERSABLE CR [Suspect]
     Dosage: 0.2 MG
     Route: 048

REACTIONS (1)
  - Blood pressure fluctuation [Unknown]
